FAERS Safety Report 16822209 (Version 1)
Quarter: 2019Q3

REPORT INFORMATION
  Report Type: Spontaneous
  Country: US (occurrence: US)
  Receive Date: 20190726
  Receipt Date: 20190726
  Transmission Date: 20191005
  Serious: Yes (Other)
  Sender: FDA-Public Use
  Company Number: None

PATIENT
  Age: 68 Year
  Sex: Female
  Weight: 93.71 kg

DRUGS (13)
  1. VITAMIN C [Concomitant]
     Active Substance: ASCORBIC ACID
  2. FENTANYL. [Concomitant]
     Active Substance: FENTANYL
  3. CAPECITABINE 500MG [Suspect]
     Active Substance: CAPECITABINE
     Indication: PANCREATIC CARCINOMA
     Route: 048
     Dates: start: 20190530, end: 20190726
  4. OMEPRAZOLE. [Concomitant]
     Active Substance: OMEPRAZOLE
  5. LIDODERM [Concomitant]
     Active Substance: LIDOCAINE
  6. LYRICA [Concomitant]
     Active Substance: PREGABALIN
  7. BUPROPRION [Concomitant]
     Active Substance: BUPROPION
  8. ASPIRIN. [Concomitant]
     Active Substance: ASPIRIN
  9. BENTYL [Concomitant]
     Active Substance: DICYCLOMINE HYDROCHLORIDE
  10. MIRALAX [Concomitant]
     Active Substance: POLYETHYLENE GLYCOL 3350
  11. LANTUS [Concomitant]
     Active Substance: INSULIN GLARGINE
  12. SYNTHROID [Concomitant]
     Active Substance: LEVOTHYROXINE SODIUM
  13. ZOLPIDEM [Concomitant]
     Active Substance: ZOLPIDEM TARTRATE

REACTIONS (1)
  - Product quality issue [None]

NARRATIVE: CASE EVENT DATE: 20190726
